FAERS Safety Report 12336589 (Version 1)
Quarter: 2016Q2

REPORT INFORMATION
  Report Type: Spontaneous
  Country: NL (occurrence: NL)
  Receive Date: 20160505
  Receipt Date: 20160505
  Transmission Date: 20160815
  Serious: Yes (Other)
  Sender: FDA-Public Use
  Company Number: NL-ROCHE-1752871

PATIENT
  Age: 57 Year
  Sex: Male

DRUGS (5)
  1. THYRAX [Concomitant]
     Active Substance: LEVOTHYROXINE
  2. NUTROPIN AQ [Suspect]
     Active Substance: SOMATROPIN
     Indication: HYPOPITUITARISM
     Dosage: 10 MG / 2 ML
     Route: 065
     Dates: start: 20130510, end: 20160122
  3. ANDROGEL [Concomitant]
     Active Substance: TESTOSTERONE
  4. NUTROPIN AQ [Suspect]
     Active Substance: SOMATROPIN
     Indication: PRODUCT USE ISSUE
  5. HYDROCORTISONE. [Concomitant]
     Active Substance: HYDROCORTISONE

REACTIONS (1)
  - Myeloproliferative neoplasm [Not Recovered/Not Resolved]

NARRATIVE: CASE EVENT DATE: 20150402
